FAERS Safety Report 19360476 (Version 1)
Quarter: 2021Q2

REPORT INFORMATION
  Report Type: Report from Study
  Country: None (occurrence: US)
  Receive Date: 20210602
  Receipt Date: 20210602
  Transmission Date: 20210717
  Serious: No
  Sender: FDA-Public Use
  Company Number: US-MDD US OPERATIONS-USW202006-001319

PATIENT
  Age: 83 Year
  Sex: Male
  Weight: 99.79 kg

DRUGS (7)
  1. APOKYN [Suspect]
     Active Substance: APOMORPHINE HYDROCHLORIDE
     Indication: PARKINSON^S DISEASE
     Route: 058
     Dates: start: 20200625, end: 202007
  2. HYDRALAZINE [Concomitant]
     Active Substance: HYDRALAZINE HYDROCHLORIDE
  3. VITAMIN D+CALCIUM [Concomitant]
     Dosage: NOT PROVIDED
  4. PRAVASTATIN. [Concomitant]
     Active Substance: PRAVASTATIN
     Dosage: NOT PROVIDED
  5. FUROSEMIDE. [Concomitant]
     Active Substance: FUROSEMIDE
     Dosage: NOT PROVIDED
  6. CARBIDOPA/LEVODOPA [Concomitant]
     Active Substance: CARBIDOPA\LEVODOPA
     Dosage: 1.5 (UNITS NOT PROVIDED)
  7. ASA [Concomitant]
     Active Substance: ASPIRIN
     Dosage: NOT PROVIDED

REACTIONS (3)
  - Product administration interrupted [Unknown]
  - Somnolence [Recovered/Resolved]
  - Yawning [Recovered/Resolved]

NARRATIVE: CASE EVENT DATE: 20200625
